FAERS Safety Report 5334550-0 (Version None)
Quarter: 2007Q2

REPORT INFORMATION
  Report Type: 
  Country: None (occurrence: None)
  Receive Date: 20070525
  Receipt Date: 20070517
  Transmission Date: 20071010
  Serious: Yes (Other)
  Sender: FDA-Public Use
  Company Number: GB-AVENTIS-200714401GDDC

PATIENT
  Age: 62 Year
  Sex: Female

DRUGS (7)
  1. METRONIDAZOLE [Suspect]
     Route: 048
     Dates: start: 20070423, end: 20070428
  2. AMITRIPTYLINE HCL [Concomitant]
     Indication: PAIN
     Route: 048
  3. AMOXICILLIN [Concomitant]
     Route: 048
     Dates: start: 20070423, end: 20070428
  4. MELOXICAM [Concomitant]
     Indication: ARTHRITIS
     Route: 048
  5. NEOCLARITYN [Concomitant]
     Route: 048
  6. PARACETAMOL [Concomitant]
     Indication: ARTHRITIS
     Route: 048
  7. QUININE SULFATE [Concomitant]
     Route: 048

REACTIONS (4)
  - LIP SWELLING [None]
  - PRURITUS [None]
  - RASH [None]
  - URINE COLOUR ABNORMAL [None]
